FAERS Safety Report 5169496-4 (Version None)
Quarter: 2006Q4

REPORT INFORMATION
  Report Type: 
  Country: None (occurrence: None)
  Receive Date: 20061211
  Receipt Date: 20051007
  Transmission Date: 20070319
  Serious: Yes (Life-Threatening, Hospitalization)
  Sender: FDA-Public Use
  Company Number: FR-ABBOTT-05P-056-0313175-00

PATIENT
  Age: 11 Year
  Sex: Male

DRUGS (1)
  1. DEPAKENE [Suspect]
     Indication: DRUG USE FOR UNKNOWN INDICATION
     Route: 048
     Dates: start: 19941214, end: 20050731

REACTIONS (18)
  - ANOREXIA [None]
  - ANURIA [None]
  - APPENDICITIS [None]
  - DIABETES MELLITUS [None]
  - HEPATIC FAILURE [None]
  - HEPATIC STEATOSIS [None]
  - INFUSION SITE REACTION [None]
  - PANCREATITIS [None]
  - PERICARDIAL EFFUSION [None]
  - POLYURIA [None]
  - PULMONARY EMBOLISM [None]
  - PULMONARY OEDEMA [None]
  - RENAL FAILURE [None]
  - RESPIRATORY DISTRESS [None]
  - RHABDOMYOLYSIS [None]
  - SEPTIC SHOCK [None]
  - SKIN DISCOLOURATION [None]
  - SUBILEUS [None]
